FAERS Safety Report 16093904 (Version 1)
Quarter: 2019Q1

REPORT INFORMATION
  Report Type: Spontaneous
  Country: US (occurrence: US)
  Receive Date: 20190215
  Receipt Date: 20190215
  Transmission Date: 20190418
  Serious: No
  Sender: FDA-Public Use
  Company Number: None

PATIENT
  Age: 70 Year
  Sex: Male
  Weight: 58.97 kg

DRUGS (4)
  1. XGEVA [Suspect]
     Active Substance: DENOSUMAB
     Indication: PROSTATE CANCER
     Route: 058
     Dates: start: 201803
  2. FIRMAGON [Suspect]
     Active Substance: DEGARELIX ACETATE
     Indication: PROSTATE CANCER
     Route: 058
     Dates: start: 201803
  3. FIRMAGON [Suspect]
     Active Substance: DEGARELIX ACETATE
     Indication: BONE CANCER
  4. XGEVA [Suspect]
     Active Substance: DENOSUMAB
     Indication: BONE CANCER

REACTIONS (2)
  - Muscular weakness [None]
  - Back pain [None]
